FAERS Safety Report 9337496 (Version 1)
Quarter: 2013Q2

REPORT INFORMATION
  Report Type: Spontaneous
  Country: CA (occurrence: CA)
  Receive Date: 20130607
  Receipt Date: 20130607
  Transmission Date: 20140414
  Serious: Yes (Disabling)
  Sender: FDA-Public Use
  Company Number: CA-TEVA-410713USA

PATIENT
  Age: 74 Year
  Sex: Male
  Weight: 84.9 kg

DRUGS (4)
  1. CLONAZEPAM [Suspect]
     Dosage: 1.5 MILLIGRAM DAILY;
     Route: 048
  2. FINASTERIDE [Concomitant]
  3. MIRTAZEPINE [Concomitant]
  4. SULPHA [Concomitant]

REACTIONS (3)
  - Anxiety [Recovered/Resolved]
  - Condition aggravated [Recovered/Resolved]
  - Drug ineffective [Recovered/Resolved]
